FAERS Safety Report 7653202-5 (Version None)
Quarter: 2011Q3

REPORT INFORMATION
  Report Type: 
  Country: None (occurrence: None)
  Receive Date: 20110728
  Receipt Date: 20110718
  Transmission Date: 20111222
  Serious: Yes (Death, Hospitalization)
  Sender: FDA-Public Use
  Company Number: 120030

PATIENT
  Age: 5 Year
  Sex: Male

DRUGS (2)
  1. ONDANSETRON [Suspect]
     Indication: VOMITING
     Dosage: 2 MG  SUBLINGUAL
     Route: 060
  2. ONDANSETRON [Suspect]
     Indication: ABDOMINAL PAIN
     Dosage: 2 MG  SUBLINGUAL
     Route: 060

REACTIONS (3)
  - VOMITING [None]
  - HYPERTHERMIA MALIGNANT [None]
  - ABDOMINAL PAIN [None]
